FAERS Safety Report 8884837 (Version 2)
Quarter: 2012Q4

REPORT INFORMATION
  Report Type: 
  Country: BR (occurrence: BR)
  Receive Date: 20121102
  Receipt Date: 20121206
  Transmission Date: 20130627
  Serious: Yes (Other)
  Sender: FDA-Public Use
  Company Number: BR-ABBOTT-12P-020-1000624-00

PATIENT
  Sex: Female
  Weight: 75 kg

DRUGS (2)
  1. SYNTHROID [Suspect]
     Indication: THYROID HORMONE REPLACEMENT THERAPY
     Dates: end: 200905
  2. SYNTHROID [Suspect]

REACTIONS (3)
  - Thyroid cancer [Recovered/Resolved]
  - Weight increased [Not Recovered/Not Resolved]
  - Blood cholesterol increased [Not Recovered/Not Resolved]
